FAERS Safety Report 6244672-8 (Version None)
Quarter: 2009Q2

REPORT INFORMATION
  Report Type: 
  Country: None (occurrence: None)
  Receive Date: 20090625
  Receipt Date: 20090609
  Transmission Date: 20091009
  Serious: Yes (Other)
  Sender: FDA-Public Use
  Company Number: US-BAYER-200918213NA

PATIENT
  Age: 39 Year
  Sex: Female
  Weight: 75 kg

DRUGS (2)
  1. ULTRAVIST (PHARMACY BULK) [Suspect]
     Indication: COMPUTERISED TOMOGRAM ABDOMEN
     Dosage: TOTAL DAILY DOSE: 100 ML  UNIT DOSE: 500 ML
     Route: 042
     Dates: start: 20090406, end: 20090406
  2. EZEM BARIUM SULFATE [Concomitant]

REACTIONS (3)
  - CONVULSION [None]
  - OROPHARYNGEAL DISCOMFORT [None]
  - THROAT TIGHTNESS [None]
